FAERS Safety Report 7959051-2 (Version None)
Quarter: 2011Q4

REPORT INFORMATION
  Report Type: 
  Country: None (occurrence: None)
  Receive Date: 20111206
  Receipt Date: 20101220
  Transmission Date: 20120403
  Serious: No
  Sender: FDA-Public Use
  Company Number: US-GLAXOSMITHKLINE-A0900627A

PATIENT
  Age: 26 Year
  Sex: Female
  Weight: 50.5 kg

DRUGS (2)
  1. LAMOTRIGINE [Suspect]
     Indication: PARTIAL SEIZURES
     Dosage: 150MG TWICE PER DAY
     Route: 048
     Dates: start: 20090301
  2. MULTI-VITAMINS [Concomitant]
     Indication: PREGNANCY
     Route: 048
     Dates: start: 20101001

REACTIONS (1)
  - MATERNAL EXPOSURE DURING PREGNANCY [None]
